FAERS Safety Report 5373392-7 (Version None)
Quarter: 2007Q2

REPORT INFORMATION
  Report Type: 
  Country: None (occurrence: None)
  Receive Date: 20070626
  Receipt Date: 20070626
  Transmission Date: 20071010
  Serious: Yes (Life-Threatening, Hospitalization)
  Sender: FDA-Public Use
  Company Number: None

PATIENT
  Age: 78 Year
  Sex: Female
  Weight: 71.6683 kg

DRUGS (2)
  1. AVASTIN [Suspect]
     Indication: BREAST CANCER
     Dosage: 10 MG/KG  DAYS 1 AND 15  IV
     Route: 042
     Dates: start: 20070322, end: 20070514
  2. AVASTIN [Suspect]

REACTIONS (1)
  - LARGE INTESTINE PERFORATION [None]
